FAERS Safety Report 9262937 (Version 1)
Quarter: 2013Q2

REPORT INFORMATION
  Report Type: Spontaneous
  Country: US (occurrence: US)
  Receive Date: 20130430
  Receipt Date: 20130430
  Transmission Date: 20140414
  Serious: Yes (Hospitalization)
  Sender: FDA-Public Use
  Company Number: US-BAYER-2013-052112

PATIENT
  Age: 37 Year
  Sex: Female
  Weight: 104 kg

DRUGS (27)
  1. YAZ [Suspect]
  2. YASMIN [Suspect]
  3. XOLAIR [Concomitant]
     Dosage: EVERY 2 WEEKS, LONG TERM USE
  4. CYMBALTA [Concomitant]
     Dosage: 60 MG, LONG TERM USE
  5. TRAZODONE [Concomitant]
     Dosage: 50 MG,LONG TERM USE
  6. RANITIDINE [Concomitant]
     Dosage: 300 MG, LONG TERM USE
  7. LEVOXYL [Concomitant]
     Dosage: 200 ?G, LONG TERM USE
  8. PRAVASTATIN [Concomitant]
     Dosage: 40 MG, LONG TERM USE
  9. BUSPAR [Concomitant]
     Dosage: 30 MG, LONG TERM USE
  10. VERAPAMIL [Concomitant]
     Dosage: 240 MG, LONG TERM USE
  11. ABILIFY [Concomitant]
     Dosage: 5 MG, LONG TERM USE
  12. PROVIGIL [Concomitant]
     Dosage: 200 MG, LONG TERM USE
  13. LASIX [Concomitant]
     Dosage: 40 MG,LONG TERM USE
  14. ASPIRIN [Concomitant]
     Dosage: 325 MG,LONG TERM USE
  15. ACIPHEX [Concomitant]
     Dosage: LONG TERM USE
  16. TRICOR [Concomitant]
     Dosage: 145 MG, LONG TERM USE
  17. ZETIA [Concomitant]
     Dosage: 10 MG, LONG TERM USE
  18. REGLAN [Concomitant]
     Dosage: 10 MG, LONG TERM USE
  19. PREDNISONE [Concomitant]
     Dosage: VARIED, LONG TERM USE
  20. KLONOPIN [Concomitant]
     Dosage: 0.5 MG, LONG TERM USE
  21. ZYRTEC [Concomitant]
     Dosage: 10 MG, LONG TERM USE
  22. ZYFLO [Concomitant]
     Dosage: 600 MG, LONG TERM USE
  23. MOTRIN [Concomitant]
  24. KEFLEX [Concomitant]
     Dosage: LONG TERM USE
  25. XOPENEX [Concomitant]
     Dosage: LONG TERM USE
  26. ALBUTEROL [Concomitant]
     Dosage: LONG TERM USE
  27. VYTORIN [Concomitant]
     Dosage: LONG TERM USE

REACTIONS (2)
  - Pulmonary embolism [None]
  - Thrombophlebitis superficial [None]
